FAERS Safety Report 24984104 (Version 1)
Quarter: 2025Q1

REPORT INFORMATION
  Report Type: Spontaneous
  Country: US (occurrence: US)
  Receive Date: 20250219
  Receipt Date: 20250219
  Transmission Date: 20250409
  Serious: No
  Sender: Haleon PLC
  Company Number: US-HALEON-2227833

PATIENT

DRUGS (1)
  1. SENSODYNE CLINICAL WHITE INTENSIVE CLEAN [Suspect]
     Active Substance: POTASSIUM NITRATE\SODIUM FLUORIDE
     Indication: Gingival pain

REACTIONS (4)
  - Paraesthesia [Unknown]
  - Hypoaesthesia oral [Unknown]
  - Drug effective for unapproved indication [Unknown]
  - Product use in unapproved indication [Unknown]
